FAERS Safety Report 9222491 (Version 1)
Quarter: 2013Q2

REPORT INFORMATION
  Report Type: Report from Study
  Country: IT (occurrence: IT)
  Receive Date: 20130410
  Receipt Date: 20130410
  Transmission Date: 20140414
  Serious: Yes (Death)
  Sender: FDA-Public Use
  Company Number: IT-SANOFI-AVENTIS-2013SA036978

PATIENT
  Sex: 0

DRUGS (3)
  1. FLUOROURACIL [Suspect]
     Indication: RECTAL CANCER
     Dosage: 5 DAYS PER WEEK ON DAYS OF PLANNED RADIATION THERAPY
     Route: 042
  2. OXALIPLATIN [Suspect]
     Indication: RECTAL CANCER
     Dosage: ON DAYS 1, 8, 15, 22, 29, 35 AS A 2 HOURS INTRAVENOUS CONCURRENTLY WITH RADIATION THERAPY
     Route: 042
  3. THERAPEUTIC RADIOPHARMACEUTICALS [Suspect]
     Indication: RECTAL CANCER
     Dosage: 45 GY (25 DAILY FRACTIONS OF 1.8 GY IN 5 WEEKS)-PTV1; 5.4-9 GY (3-5 DAILY FRACTIONS OF 1.8 GY)-PTV2
     Route: 065

REACTIONS (1)
  - Embolism [Fatal]
